FAERS Safety Report 16759094 (Version 10)
Quarter: 2020Q2

REPORT INFORMATION
  Report Type: Report from Study
  Country: CA (occurrence: CA)
  Receive Date: 20190830
  Receipt Date: 20200623
  Transmission Date: 20200713
  Serious: Yes (Hospitalization)
  Sender: FDA-Public Use
  Company Number: PHHY2019CA200899

PATIENT
  Age: 48 Year
  Sex: Male

DRUGS (4)
  1. LACTATED RINGERS SOLUTION [Concomitant]
     Active Substance: CALCIUM CHLORIDE\POTASSIUM CHLORIDE\SODIUM CHLORIDE\SODIUM LACTATE
     Indication: PRODUCT USED FOR UNKNOWN INDICATION
     Dosage: 1000 ML (OVER 4 HOURS)
     Route: 065
  2. OCTREOTIDE. [Suspect]
     Active Substance: OCTREOTIDE
     Indication: PRODUCT USED FOR UNKNOWN INDICATION
     Dosage: 150 UG, TID (FOR 4 WEEKS)
     Route: 058
  3. SANDOSTATIN LAR DEPOT [Suspect]
     Active Substance: OCTREOTIDE ACETATE
     Indication: CARCINOID TUMOUR
     Dosage: 30 MG, Q3W (EVERY 3 WEEKS)
     Route: 030
     Dates: start: 20130701
  4. CAPECITABINE. [Concomitant]
     Active Substance: CAPECITABINE
     Indication: PRODUCT USED FOR UNKNOWN INDICATION
     Dosage: 5 DF, BID
     Route: 048
     Dates: start: 20200303

REACTIONS (18)
  - Blood potassium increased [Unknown]
  - Dehydration [Recovering/Resolving]
  - Fatigue [Recovered/Resolved]
  - Asthenia [Recovered/Resolved]
  - General physical health deterioration [Unknown]
  - Dehydration [Unknown]
  - Blood calcium increased [Unknown]
  - Diarrhoea [Not Recovered/Not Resolved]
  - Blood potassium decreased [Unknown]
  - Nausea [Unknown]
  - Pruritus [Unknown]
  - Dehydration [Recovered/Resolved]
  - Fatigue [Not Recovered/Not Resolved]
  - Dizziness [Unknown]
  - Inappropriate schedule of product administration [Unknown]
  - Weight decreased [Unknown]
  - Vomiting [Unknown]
  - Blood phosphorus decreased [Unknown]

NARRATIVE: CASE EVENT DATE: 201307
